FAERS Safety Report 4151224 (Version 2)
Quarter: 2018Q1

REPORT INFORMATION
  Report Type: Spontaneous
  Country: GB (occurrence: GB)
  Receive Date: 20040608
  Receipt Date: 20180320
  Transmission Date: 20180509
  Serious: Yes (Life-Threatening, Hospitalization, Other)
  Sender: FDA-Public Use
  Company Number: GB-GLAXOSMITHKLINE-B0334224A

PATIENT
  Age: 47 Year
  Sex: Female

DRUGS (5)
  1. ZOVIRAX [Suspect]
     Active Substance: ACYCLOVIR
     Dosage: 250 MG, UNK
     Route: 042
     Dates: start: 20040516
  2. ZOVIRAX [Suspect]
     Active Substance: ACYCLOVIR
     Dosage: UNK UNK, U
     Route: 048
     Dates: start: 20040514, end: 20040516
  3. PREDNISOLONE. [Concomitant]
     Active Substance: PREDNISOLONE
     Dosage: 10 MG, 1D
     Route: 065
  4. PERITONEAL DIALYSIS [Concomitant]
     Dosage: UNK
     Route: 065
  5. AZATHIOPRINE. [Concomitant]
     Active Substance: AZATHIOPRINE
     Dosage: 100 MG, 1D
     Route: 065

REACTIONS (10)
  - Hallucination, visual [Recovering/Resolving]
  - Coma [Unknown]
  - Somnolence [Recovering/Resolving]
  - Vasculitis [Unknown]
  - Neurotoxicity [Unknown]
  - Encephalopathy [Recovering/Resolving]
  - Agitation [Recovering/Resolving]
  - Mental disorder [Unknown]
  - Encephalitis [Unknown]
  - Postural tremor [Recovered/Resolved]

NARRATIVE: CASE EVENT DATE: 20040516
